FAERS Safety Report 9462995 (Version 2)
Quarter: 2013Q3

REPORT INFORMATION
  Report Type: Spontaneous
  Country: US (occurrence: US)
  Receive Date: 20130816
  Receipt Date: 20130816
  Transmission Date: 20140515
  Serious: Yes (Hospitalization, Other)
  Sender: FDA-Public Use
  Company Number: US-UCBSA-087781

PATIENT
  Sex: Male
  Weight: 113 kg

DRUGS (6)
  1. VIMPAT [Suspect]
     Indication: CONVULSION
     Dosage: 100 MG AT 7 AM, 100 MG AT 2 PM AND 200 MG HS
  2. DEPAKOTE [Concomitant]
  3. ETHOSUXIMIDE [Concomitant]
     Dosage: D/C ON 23-MAY-2013
  4. EFFEXOR [Concomitant]
     Indication: MOOD SWINGS
     Dosage: 150 MG QHS
  5. DIVALPROEX ER [Concomitant]
     Dosage: 4 TABLETS QHS
  6. ZONISAMIDE [Concomitant]
     Indication: CONVULSION
     Dosage: 100 MG 2 TABLETS QHS

REACTIONS (5)
  - Grand mal convulsion [Not Recovered/Not Resolved]
  - Petit mal epilepsy [Not Recovered/Not Resolved]
  - Fatigue [Unknown]
  - Headache [Unknown]
  - Inappropriate schedule of drug administration [Unknown]
